FAERS Safety Report 6657140-6 (Version None)
Quarter: 2010Q1

REPORT INFORMATION
  Report Type: 
  Country: None (occurrence: None)
  Receive Date: 20100330
  Receipt Date: 20100323
  Transmission Date: 20100710
  Serious: Yes (Life-Threatening, Hospitalization)
  Sender: FDA-Public Use
  Company Number: BR-JNJFOC-20100300227

PATIENT
  Age: 5 Decade
  Sex: Male

DRUGS (3)
  1. INVEGA [Suspect]
     Indication: SCHIZOPHRENIA
     Route: 048
  2. CARBOLITIUM [Concomitant]
  3. LEVODOPA [Concomitant]

REACTIONS (2)
  - CARDIAC ARREST [None]
  - NEUROLEPTIC MALIGNANT SYNDROME [None]
